FAERS Safety Report 14387984 (Version 2)
Quarter: 2018Q3

REPORT INFORMATION
  Report Type: Spontaneous
  Country: US (occurrence: US)
  Receive Date: 20180115
  Receipt Date: 20180814
  Transmission Date: 20181010
  Serious: Yes (Other)
  Sender: FDA-Public Use
  Company Number: US-SA-2017SA202542

PATIENT
  Age: 53 Year
  Sex: Female
  Weight: 74.84 kg

DRUGS (4)
  1. HERCEPTIN [Concomitant]
     Active Substance: TRASTUZUMAB
  2. TAXOTERE [Suspect]
     Active Substance: DOCETAXEL
     Indication: BREAST CANCER FEMALE
     Dosage: 134 MG,Q3W
     Route: 042
     Dates: start: 20140515, end: 20140515
  3. TAXOTERE [Suspect]
     Active Substance: DOCETAXEL
     Dosage: 134 MG,Q3W
     Route: 042
     Dates: start: 20140828, end: 20140828
  4. PARAPLATIN [Concomitant]
     Active Substance: CARBOPLATIN

REACTIONS (2)
  - Psychological trauma [Unknown]
  - Alopecia [Recovering/Resolving]

NARRATIVE: CASE EVENT DATE: 201503
